FAERS Safety Report 14174958 (Version 1)
Quarter: 2017Q4

REPORT INFORMATION
  Report Type: Report from Study
  Country: CN (occurrence: CN)
  Receive Date: 20171109
  Receipt Date: 20171109
  Transmission Date: 20180321
  Serious: Yes (Death)
  Sender: FDA-Public Use
  Company Number: CN-ASTRAZENECA-2017SF14266

PATIENT

DRUGS (1)
  1. GEFITINIB. [Suspect]
     Active Substance: GEFITINIB
     Indication: NON-SMALL CELL LUNG CANCER
     Dosage: 250 MG ONCE DAILY IN 28-DAY CYCLES.
     Route: 048

REACTIONS (1)
  - Large intestine perforation [Fatal]
